FAERS Safety Report 23033281 (Version 1)
Quarter: 2023Q4

REPORT INFORMATION
  Report Type: Spontaneous
  Country: CN (occurrence: None)
  Receive Date: 20231005
  Receipt Date: 20231005
  Transmission Date: 20240110
  Serious: Yes (Hospitalization, Other)
  Sender: FDA-Public Use
  Company Number: 2023A223985

PATIENT
  Age: 77 Year
  Sex: Female

DRUGS (2)
  1. ROSUVASTATIN CALCIUM [Suspect]
     Active Substance: ROSUVASTATIN CALCIUM
     Indication: Lipids
     Dates: start: 20230831, end: 20230912
  2. VALPROATE SODIUM [Suspect]
     Active Substance: VALPROATE SODIUM
     Indication: Epilepsy
     Dates: start: 20230828, end: 20230922

REACTIONS (3)
  - Epilepsy [Unknown]
  - Hepatic enzyme increased [Recovering/Resolving]
  - Suspected drug-induced liver injury [Unknown]

NARRATIVE: CASE EVENT DATE: 20230912
